FAERS Safety Report 17222563 (Version 1)
Quarter: 2020Q1

REPORT INFORMATION
  Report Type: Spontaneous
  Country: US (occurrence: US)
  Receive Date: 20200101
  Receipt Date: 20200101
  Transmission Date: 20200409
  Serious: No
  Sender: FDA-Public Use
  Company Number: US-GLAXOSMITHKLINE-US2019AMR236340

PATIENT
  Age: 79 Year
  Sex: Female

DRUGS (1)
  1. ANORO ELLIPTA [Suspect]
     Active Substance: UMECLIDINIUM BROMIDE\VILANTEROL TRIFENATATE
     Indication: PRODUCT USED FOR UNKNOWN INDICATION
     Dosage: 250 MG, QD
     Route: 065
     Dates: start: 2019

REACTIONS (4)
  - Nasopharyngitis [Unknown]
  - Cough [Unknown]
  - Sputum discoloured [Unknown]
  - Malaise [Unknown]

NARRATIVE: CASE EVENT DATE: 201912
